FAERS Safety Report 4864790-6 (Version None)
Quarter: 2005Q4

REPORT INFORMATION
  Report Type: 
  Country: None (occurrence: None)
  Receive Date: 20051222
  Receipt Date: 20051005
  Transmission Date: 20060501
  Serious: Yes (Hospitalization)
  Sender: FDA-Public Use
  Company Number: US-MERCK-0510USA04114

PATIENT
  Age: 68 Year
  Sex: Female
  Weight: 82 kg

DRUGS (9)
  1. VIOXX [Suspect]
     Indication: ARTHRITIS
     Route: 048
     Dates: start: 20000101, end: 20040901
  2. INDAPAMIDE [Concomitant]
     Route: 065
  3. PREMARIN [Concomitant]
     Route: 065
  4. GLIPIZIDE [Concomitant]
     Route: 065
  5. METFORMIN [Concomitant]
     Route: 065
  6. AMITRIPTYLINE HYDROCHLORIDE [Concomitant]
     Route: 065
  7. DILANTIN [Concomitant]
     Route: 065
  8. ATIVAN [Concomitant]
     Route: 065
  9. TRIMOX [Concomitant]
     Route: 065

REACTIONS (1)
  - MYOCARDIAL INFARCTION [None]
